FAERS Safety Report 9610695 (Version 2)
Quarter: 2015Q4

REPORT INFORMATION
  Report Type: Report from Study
  Country: US (occurrence: US)
  Receive Date: 20131009
  Receipt Date: 20151022
  Transmission Date: 20160305
  Serious: Yes (Other)
  Sender: FDA-Public Use
  Company Number: US-ROCHE-1285341

PATIENT
  Sex: Female

DRUGS (14)
  1. AVASTIN [Suspect]
     Active Substance: BEVACIZUMAB
     Indication: DIABETIC RETINAL OEDEMA
     Dosage: OS
     Route: 050
     Dates: start: 20130205
  2. SIMVASTATIN. [Concomitant]
     Active Substance: SIMVASTATIN
     Dosage: 1 TAB IN THE EVENING.
     Route: 065
  3. PHENYLEPHRINE [Concomitant]
     Active Substance: PHENYLEPHRINE\PHENYLEPHRINE HYDROCHLORIDE
     Route: 065
  4. AVASTIN [Suspect]
     Active Substance: BEVACIZUMAB
     Indication: DIABETIC RETINOPATHY
     Dosage: OS
     Route: 050
     Dates: start: 20130103
  5. AVASTIN [Suspect]
     Active Substance: BEVACIZUMAB
     Dosage: OS
     Route: 050
     Dates: start: 20130618
  6. AVASTIN [Suspect]
     Active Substance: BEVACIZUMAB
     Dosage: OS
     Route: 050
     Dates: start: 20130716
  7. AVASTIN [Suspect]
     Active Substance: BEVACIZUMAB
     Dosage: OS
     Route: 050
     Dates: start: 20130903
  8. AVASTIN [Suspect]
     Active Substance: BEVACIZUMAB
     Dosage: OS
     Route: 050
     Dates: start: 20130402
  9. TROPICAMIDE. [Concomitant]
     Active Substance: TROPICAMIDE
     Route: 065
  10. AVASTIN [Suspect]
     Active Substance: BEVACIZUMAB
     Dosage: OS
     Route: 050
     Dates: start: 20130305
  11. AVASTIN [Suspect]
     Active Substance: BEVACIZUMAB
     Dosage: OS
     Route: 050
     Dates: start: 20130521
  12. JANUVIA [Concomitant]
     Active Substance: SITAGLIPTIN PHOSPHATE
     Route: 048
  13. GLIMEPIRIDE. [Concomitant]
     Active Substance: GLIMEPIRIDE
     Route: 048
  14. METFORMIN HYDROCHLORIDE. [Concomitant]
     Active Substance: METFORMIN HYDROCHLORIDE
     Route: 048

REACTIONS (5)
  - Macular oedema [Unknown]
  - Cutis laxa [Unknown]
  - Visual impairment [Unknown]
  - Off label use [Unknown]
  - Retinal haemorrhage [Unknown]
